FAERS Safety Report 16156633 (Version 7)
Quarter: 2025Q3

REPORT INFORMATION
  Report Type: Report from Study
  Country: US (occurrence: US)
  Receive Date: 20190404
  Receipt Date: 20250815
  Transmission Date: 20251021
  Serious: Yes (Hospitalization, Other)
  Sender: TAKEDA
  Company Number: US-TAKEDA-2019TUS018912

PATIENT
  Sex: Male

DRUGS (8)
  1. PONATINIB [Suspect]
     Active Substance: PONATINIB
     Indication: Acute lymphocytic leukaemia
     Dosage: 15 MILLIGRAM, QD
     Dates: start: 20181025, end: 201901
  2. PONATINIB [Suspect]
     Active Substance: PONATINIB
     Dosage: 15 MILLIGRAM, QD
     Dates: start: 201905
  3. PONATINIB [Suspect]
     Active Substance: PONATINIB
     Dosage: 50 MILLIGRAM, QD
  4. PONATINIB [Suspect]
     Active Substance: PONATINIB
     Dosage: 15 MILLIGRAM, QD
  5. PONATINIB [Suspect]
     Active Substance: PONATINIB
     Dosage: 15 MILLIGRAM, QD
  6. XARELTO [Concomitant]
     Active Substance: RIVAROXABAN
  7. FAMOTIDINE [Concomitant]
     Active Substance: FAMOTIDINE
  8. CITALOPRAM HYDROBROMIDE [Concomitant]
     Active Substance: CITALOPRAM HYDROBROMIDE

REACTIONS (9)
  - Leukaemia [Not Recovered/Not Resolved]
  - Dyspnoea [Not Recovered/Not Resolved]
  - Hypertension [Not Recovered/Not Resolved]
  - Product dose omission issue [Unknown]
  - Gait inability [Unknown]
  - Speech disorder [Unknown]
  - Headache [Unknown]
  - Cough [Unknown]
  - Rash [Unknown]
